FAERS Safety Report 4295091-5 (Version None)
Quarter: 2004Q1

REPORT INFORMATION
  Report Type: 
  Country: None (occurrence: None)
  Receive Date: 20040216
  Receipt Date: 20030120
  Transmission Date: 20041129
  Serious: Yes (Life-Threatening, Hospitalization)
  Sender: FDA-Public Use
  Company Number: FR-GLAXOSMITHKLINE-B0290029A

PATIENT
  Age: 25 Year
  Sex: Female
  Weight: 56 kg

DRUGS (6)
  1. LAMICTAL [Suspect]
     Indication: EPILEPSY
     Dosage: 100MG TWICE PER DAY
     Route: 048
     Dates: start: 19970615
  2. DEPAKENE [Suspect]
     Indication: EPILEPSY
     Dosage: 750MG PER DAY
     Route: 048
     Dates: start: 19830615
  3. ANDROCUR [Suspect]
     Indication: HAIR DISORDER
     Dosage: 25MG PER DAY
     Route: 048
  4. PROVAMES [Suspect]
     Route: 048
  5. HYDROCORTISONE [Suspect]
     Route: 048
  6. EPITOMAX [Suspect]
     Indication: EPILEPSY
     Dosage: 15MG SIX TIMES PER DAY
     Route: 048
     Dates: start: 20020915

REACTIONS (16)
  - ANURIA [None]
  - CARDIAC ARREST [None]
  - CSF GLUCOSE INCREASED [None]
  - CSF PROTEIN INCREASED [None]
  - DIALYSIS [None]
  - DIARRHOEA [None]
  - DISSEMINATED INTRAVASCULAR COAGULATION [None]
  - HYPOTENSION [None]
  - LEUKOPENIA [None]
  - NECROSIS [None]
  - NERVOUS SYSTEM DISORDER [None]
  - PYREXIA [None]
  - RED BLOOD CELLS CSF POSITIVE [None]
  - RENAL FAILURE ACUTE [None]
  - SHOCK [None]
  - THROMBOCYTOPENIA [None]
